FAERS Safety Report 11844096 (Version 2)
Quarter: 2016Q1

REPORT INFORMATION
  Report Type: Spontaneous
  Country: RU (occurrence: RU)
  Receive Date: 20151217
  Receipt Date: 20160212
  Transmission Date: 20160526
  Serious: Yes (Life-Threatening)
  Sender: FDA-Public Use
  Company Number: RU-SA-2015SA210912

PATIENT
  Age: 29 Year
  Sex: Male
  Weight: 69 kg

DRUGS (1)
  1. FABRAZYME [Suspect]
     Active Substance: AGALSIDASE BETA
     Indication: FABRY^S DISEASE
     Route: 041
     Dates: start: 20150831

REACTIONS (1)
  - Renal artery occlusion [Recovered/Resolved]

NARRATIVE: CASE EVENT DATE: 20151211
